FAERS Safety Report 20207084 (Version 4)
Quarter: 2022Q4

REPORT INFORMATION
  Report Type: Spontaneous
  Country: JP (occurrence: JP)
  Receive Date: 20211220
  Receipt Date: 20221212
  Transmission Date: 20230112
  Serious: Yes (Hospitalization, Other)
  Sender: FDA-Public Use
  Company Number: JP-MSD-M2021-29874

PATIENT
  Age: 7 Decade
  Sex: Male

DRUGS (1)
  1. KEYTRUDA [Suspect]
     Active Substance: PEMBROLIZUMAB
     Indication: Oropharyngeal cancer
     Dosage: 200 MILLIGRAM, Q3W
     Route: 041

REACTIONS (5)
  - Tumour haemorrhage [Unknown]
  - Malignant neoplasm progression [Unknown]
  - Bacterial sepsis [Unknown]
  - Anuria [Unknown]
  - Subcutaneous emphysema [Unknown]

NARRATIVE: CASE EVENT DATE: 20211214
